FAERS Safety Report 13952204 (Version 4)
Quarter: 2017Q4

REPORT INFORMATION
  Report Type: Spontaneous
  Country: GB (occurrence: GB)
  Receive Date: 20170911
  Receipt Date: 20171031
  Transmission Date: 20180320
  Serious: Yes (Other)
  Sender: FDA-Public Use
  Company Number: GB-CIPLA LTD.-2017GB16078

PATIENT

DRUGS (7)
  1. OLANZAPINE. [Suspect]
     Active Substance: OLANZAPINE
     Indication: SCHIZOPHRENIA
     Dosage: UNK
     Route: 065
  2. HALOPERIDOL. [Suspect]
     Active Substance: HALOPERIDOL
     Indication: SCHIZOPHRENIA
     Dosage: UNK
     Route: 065
  3. PIPOTIAZINE PALMITATE [Suspect]
     Active Substance: PIPOTIAZINE PALMITATE
     Indication: SCHIZOPHRENIA
     Dosage: UNK
     Route: 065
  4. MODECATE [Suspect]
     Active Substance: FLUPHENAZINE DECANOATE
     Indication: SCHIZOPHRENIA
     Dosage: UNK
     Route: 065
  5. MODECATE [Suspect]
     Active Substance: FLUPHENAZINE DECANOATE
     Dosage: UNK
     Route: 065
  6. HALOPERIDOL. [Suspect]
     Active Substance: HALOPERIDOL
     Indication: PSYCHOTIC DISORDER
  7. RISPERIDONE. [Suspect]
     Active Substance: RISPERIDONE
     Indication: SCHIZOPHRENIA
     Dosage: UNK
     Route: 065

REACTIONS (2)
  - Suicidal ideation [Recovered/Resolved]
  - Hallucination [Recovered/Resolved]
